FAERS Safety Report 13957673 (Version 1)
Quarter: 2017Q3

REPORT INFORMATION
  Report Type: Spontaneous
  Country: TH (occurrence: TH)
  Receive Date: 20170912
  Receipt Date: 20170912
  Transmission Date: 20171128
  Serious: Yes (Life-Threatening, Other)
  Sender: FDA-Public Use
  Company Number: TH-MACLEODS PHARMACEUTICALS US LTD-MAC2017005823

PATIENT

DRUGS (12)
  1. DOBUTAMINE [Concomitant]
     Indication: HAEMODYNAMIC INSTABILITY
     Dosage: UNK
     Route: 065
  2. MIDAZOLAM [Concomitant]
     Indication: SEDATIVE THERAPY
     Dosage: UNK
     Route: 065
  3. GENTAMICIN [Concomitant]
     Indication: ANTIBIOTIC THERAPY
     Dosage: UNK
     Route: 065
  4. NITRIC OXIDE. [Suspect]
     Active Substance: NITRIC OXIDE
     Indication: PERSISTENT FOETAL CIRCULATION
     Dosage: 20 PARTS PER MILLION, INITIAL DOSE
     Route: 055
  5. EPINEPHRINE [Concomitant]
     Indication: HAEMODYNAMIC INSTABILITY
     Dosage: UNK
     Route: 065
  6. PHENOBARBITAL [Concomitant]
     Indication: SEIZURE
     Dosage: UNK
     Route: 065
  7. SILDENAFIL. [Suspect]
     Active Substance: SILDENAFIL
     Indication: PERSISTENT FOETAL CIRCULATION
     Dosage: UNK
     Route: 048
  8. MILRINONE [Suspect]
     Active Substance: MILRINONE
     Indication: PERSISTENT FOETAL CIRCULATION
     Dosage: UNK
     Route: 042
  9. AMPICILLIN [Concomitant]
     Active Substance: AMPICILLIN
     Indication: ANTIBIOTIC THERAPY
     Dosage: UNK
     Route: 065
  10. DOPAMINE [Concomitant]
     Active Substance: DOPAMINE\DOPAMINE HYDROCHLORIDE
     Indication: HAEMODYNAMIC INSTABILITY
     Dosage: UNK
     Route: 065
  11. ILOPROST. [Suspect]
     Active Substance: ILOPROST
     Indication: PERSISTENT FOETAL CIRCULATION
     Dosage: UNK
     Route: 042
  12. FENTANYL [Concomitant]
     Indication: SEDATIVE THERAPY
     Dosage: UNK
     Route: 065

REACTIONS (1)
  - Drug ineffective [Not Recovered/Not Resolved]
